FAERS Safety Report 19625000 (Version 1)
Quarter: 2021Q3

REPORT INFORMATION
  Report Type: Report from Study
  Country: US (occurrence: US)
  Receive Date: 20210728
  Receipt Date: 20210728
  Transmission Date: 20211014
  Serious: Yes (Hospitalization)
  Sender: FDA-Public Use
  Company Number: US-TAKEDA-US202019303

PATIENT
  Age: 66 Year
  Sex: Female

DRUGS (8)
  1. TEDUGLUTIDE [Suspect]
     Active Substance: TEDUGLUTIDE
     Indication: SHORT-BOWEL SYNDROME
     Dosage: 2.95 MILLIGRAM, 1X/DAY:QD
     Route: 058
     Dates: start: 20180912
  2. TEDUGLUTIDE [Suspect]
     Active Substance: TEDUGLUTIDE
     Indication: SHORT-BOWEL SYNDROME
     Dosage: 2.95 MILLIGRAM, 1X/DAY:QD
     Route: 058
     Dates: start: 20180912
  3. TEDUGLUTIDE [Suspect]
     Active Substance: TEDUGLUTIDE
     Dosage: 0.3100 (UNIT UNK), QD
     Route: 058
     Dates: start: 20180917
  4. TEDUGLUTIDE [Suspect]
     Active Substance: TEDUGLUTIDE
     Dosage: 0.3100 (UNIT UNK), QD
     Route: 058
     Dates: start: 20180917
  5. TEDUGLUTIDE [Suspect]
     Active Substance: TEDUGLUTIDE
     Indication: SHORT-BOWEL SYNDROME
     Dosage: 2.95 MILLIGRAM, 1X/DAY:QD
     Route: 058
     Dates: start: 20180912
  6. TEDUGLUTIDE [Suspect]
     Active Substance: TEDUGLUTIDE
     Dosage: 0.3100 (UNIT UNK), QD
     Route: 058
     Dates: start: 20180917
  7. TEDUGLUTIDE [Suspect]
     Active Substance: TEDUGLUTIDE
     Indication: SHORT-BOWEL SYNDROME
     Dosage: 2.95 MILLIGRAM, 1X/DAY:QD
     Route: 058
     Dates: start: 20180912
  8. TEDUGLUTIDE [Suspect]
     Active Substance: TEDUGLUTIDE
     Dosage: 0.3100 (UNIT UNK), QD
     Route: 058
     Dates: start: 20180917

REACTIONS (2)
  - Syringe issue [Unknown]
  - Rotator cuff syndrome [Recovering/Resolving]

NARRATIVE: CASE EVENT DATE: 20210720
